FAERS Safety Report 6257664-X (Version None)
Quarter: 2009Q3

REPORT INFORMATION
  Report Type: 
  Country: None (occurrence: None)
  Receive Date: 20090706
  Receipt Date: 20090622
  Transmission Date: 20100115
  Serious: Yes (Other)
  Sender: FDA-Public Use
  Company Number: US-MYLANLABS-2009S1011005

PATIENT
  Age: 50 Year
  Sex: Male
  Weight: 86 kg

DRUGS (14)
  1. ZIDOVUDINE [Suspect]
     Indication: HIV INFECTION
  2. INDINIVIR SULFATE [Suspect]
     Indication: HIV INFECTION
  3. LAMIVUDINE [Suspect]
     Indication: HIV INFECTION
  4. NEVIRAPINE [Suspect]
     Indication: HIV INFECTION
  5. ABACAVIR [Suspect]
     Indication: HIV INFECTION
  6. STAVUDINE [Suspect]
     Indication: HIV INFECTION
  7. TENOFOVIR DISOPROXIL FUMARATE [Suspect]
     Indication: HIV INFECTION
  8. FOSAMPRENAVIR [Suspect]
     Indication: HIV INFECTION
     Dates: start: 20030201
  9. RITONAVIR [Suspect]
     Indication: HIV INFECTION
     Dates: start: 20030201
  10. DIDANOSINE [Suspect]
     Indication: HIV INFECTION
     Dates: start: 20030201
  11. EMTRICITABINE [Suspect]
     Indication: HIV INFECTION
  12. EPZICOM [Suspect]
     Indication: HIV INFECTION
  13. ATORVASTATIN CALCIUM [Concomitant]
     Indication: DYSLIPIDAEMIA
     Dates: start: 20010401
  14. PRAVASTATIN [Concomitant]
     Indication: DYSLIPIDAEMIA
     Dates: start: 20040701

REACTIONS (4)
  - DYSLIPIDAEMIA [None]
  - LIPODYSTROPHY ACQUIRED [None]
  - SLEEP APNOEA SYNDROME [None]
  - WEIGHT INCREASED [None]
